FAERS Safety Report 23089970 (Version 2)
Quarter: 2024Q1

REPORT INFORMATION
  Report Type: Spontaneous
  Country: US (occurrence: US)
  Receive Date: 20231020
  Receipt Date: 20240207
  Transmission Date: 20240410
  Serious: Yes (Hospitalization, Other)
  Sender: FDA-Public Use
  Company Number: US-PFIZER INC-PV202300173038

PATIENT
  Age: 65 Year
  Sex: Female
  Weight: 94 kg

DRUGS (15)
  1. XELJANZ XR [Suspect]
     Active Substance: TOFACITINIB CITRATE
     Indication: Rheumatoid arthritis
     Dosage: 11 MG ONCE A DAY
     Dates: start: 20220802, end: 20231002
  2. XELJANZ XR [Suspect]
     Active Substance: TOFACITINIB CITRATE
     Indication: Psoriatic arthropathy
  3. METHOTREXATE SODIUM [Concomitant]
     Active Substance: METHOTREXATE SODIUM
     Dosage: 1 ML, WEEKLY
     Route: 058
  4. ZOLPIDEM TARTRATE [Concomitant]
     Active Substance: ZOLPIDEM TARTRATE
     Dosage: 1 X ZOLPIHEXAL 10 MG -NIGHT
  5. GABAPENTIN [Concomitant]
     Active Substance: GABAPENTIN
     Dosage: 1 X GABAPENTIN 300 MG-NIGHT OR WHEN NEEDED
  6. CELEBREX [Concomitant]
     Active Substance: CELECOXIB
     Dosage: 2 X CELEBREX 200 MG- 1X MORNING 1 X NIGHT-ONLY WHEN NEEDED
  7. OMEPRAZOLE [Concomitant]
     Active Substance: OMEPRAZOLE
     Dosage: 1 X OMEPRAZOLE 20 MG-MORNING
  8. HYDROCHLOROTHIAZIDE [Concomitant]
     Active Substance: HYDROCHLOROTHIAZIDE
     Dosage: 3 X HYDROCHLOROTHIAZIDE 25MG-MORNING
  9. AMLODIPINE [Concomitant]
     Active Substance: AMLODIPINE BESYLATE
     Dosage: 1 X AMLODIPINE 5MG- NIGHT
  10. AMITRIPTYLINE HYDROCHLORIDE [Concomitant]
     Active Substance: AMITRIPTYLINE HYDROCHLORIDE
     Dosage: 2 X AMITRIPTYLINE HCL 25MG-NIGHT
  11. PRAMIPEXOLE [Concomitant]
     Active Substance: PRAMIPEXOLE\PRAMIPEXOLE DIHYDROCHLORIDE
     Dosage: 2 X PRAMIPEXOLE 0.25MG-NIGHT
  12. FOLIC ACID [Concomitant]
     Active Substance: FOLIC ACID
     Dosage: 2 X FOLIC ACID-MORNING
  13. CALCIUM CITRATE + D3 [Concomitant]
     Dosage: UNK
  14. SENNOSIDES A AND B [Concomitant]
     Active Substance: SENNOSIDES A AND B
     Dosage: 8.6 MG
  15. ACTEMRA [Concomitant]
     Active Substance: TOCILIZUMAB
     Dosage: 1 X ACTEMRA PEN EVERY 2 WEEKS
     Dates: start: 20231116

REACTIONS (1)
  - Pulmonary thrombosis [Recovered/Resolved]
